FAERS Safety Report 9117538 (Version 1)
Quarter: 2013Q1

REPORT INFORMATION
  Report Type: Spontaneous
  Country: US (occurrence: US)
  Receive Date: 20130225
  Receipt Date: 20130225
  Transmission Date: 20140127
  Serious: No
  Sender: FDA-Public Use
  Company Number: US-BIOGENIDEC-2013BI015572

PATIENT
  Sex: Female

DRUGS (1)
  1. TYSABRI [Suspect]
     Indication: MULTIPLE SCLEROSIS
     Route: 042
     Dates: start: 20111130

REACTIONS (7)
  - Pyrexia [Recovered/Resolved]
  - Pleurisy [Recovered/Resolved]
  - Ear infection [Recovered/Resolved]
  - Blood test abnormal [Unknown]
  - Nuclear magnetic resonance imaging abnormal [Unknown]
  - Cough [Recovered/Resolved]
  - Sinusitis [Recovered/Resolved]
